FAERS Safety Report 8991110 (Version 1)
Quarter: 2012Q4

REPORT INFORMATION
  Report Type: Spontaneous
  Country: US (occurrence: None)
  Receive Date: 20121227
  Receipt Date: 20121227
  Transmission Date: 20130627
  Serious: Yes (Hospitalization)
  Sender: FDA-Public Use
  Company Number: None

PATIENT
  Age: 51 Year
  Sex: Female

DRUGS (7)
  1. VELCADE [Suspect]
     Indication: MYELOMA
     Dosage: 1.3MG/M2, days 1,4,8, + 11
     Dates: start: 20121128
  2. VELCADE [Suspect]
     Indication: MYELOMA
     Dates: start: 20121201
  3. VELCADE [Suspect]
     Indication: MYELOMA
     Dates: start: 20121205
  4. VELCADE [Suspect]
     Indication: MYELOMA
     Dates: start: 20121208
  5. CELEXA [Concomitant]
     Dosage: 40 mg by mouth once daily
     Route: 048
  6. OMAPRAZOLE: PRILOSEC [Concomitant]
     Dosage: 20 mg orally once daily, in the morning
     Route: 048
  7. TYLENOL EXTRA STRENGTH [Concomitant]
     Route: 048

REACTIONS (2)
  - Pathological fracture [None]
  - Hip fracture [None]
